FAERS Safety Report 7842973-0 (Version None)
Quarter: 2011Q4

REPORT INFORMATION
  Report Type: 
  Country: None (occurrence: None)
  Receive Date: 20111025
  Receipt Date: 20111012
  Transmission Date: 20120403
  Serious: Yes (Other)
  Sender: FDA-Public Use
  Company Number: US-ELI_LILLY_AND_COMPANY-US201110004064

PATIENT
  Sex: Female

DRUGS (6)
  1. CYMBALTA [Suspect]
     Dosage: 60 MG, QD
     Dates: start: 20110928
  2. CELEXA [Concomitant]
     Dosage: 40 MG, EACH EVENING
  3. DILANTIN [Concomitant]
     Indication: CONVULSION
  4. CELEXA [Concomitant]
     Dosage: 20 MG, EACH MORNING
  5. KLONOPIN [Concomitant]
     Dosage: 2 MG, EACH EVENING
     Dates: start: 19930101
  6. CYMBALTA [Suspect]
     Indication: PAIN
     Dosage: 30 MG, QD
     Dates: start: 20110914, end: 20110928

REACTIONS (8)
  - PARAESTHESIA [None]
  - HEADACHE [None]
  - TRANSIENT ISCHAEMIC ATTACK [None]
  - DRUG INEFFECTIVE [None]
  - EYE PAIN [None]
  - VISUAL IMPAIRMENT [None]
  - PAIN IN EXTREMITY [None]
  - ARTHRALGIA [None]
